FAERS Safety Report 9542956 (Version 1)
Quarter: 2013Q3

REPORT INFORMATION
  Report Type: Spontaneous
  Country: US (occurrence: US)
  Receive Date: 20130923
  Receipt Date: 20130923
  Transmission Date: 20140515
  Serious: Yes (Other)
  Sender: FDA-Public Use
  Company Number: US-PFIZER INC-2013270364

PATIENT
  Age: 61 Year
  Sex: Male
  Weight: 70.3 kg

DRUGS (4)
  1. VIAGRA [Suspect]
     Indication: ERECTILE DYSFUNCTION
     Dosage: 100 MG, AS NEEDED
     Route: 048
  2. SPIRONOLACTONE [Concomitant]
     Indication: HYPERTENSION
     Dosage: UNK
  3. EXFORGE [Concomitant]
     Indication: HYPERTENSION
     Dosage: UNK
  4. DOXYCYCLINE [Concomitant]
     Dosage: UNK

REACTIONS (1)
  - Road traffic accident [Unknown]
